FAERS Safety Report 10751548 (Version 1)
Quarter: 2015Q1

REPORT INFORMATION
  Report Type: Report from Study
  Country: AU (occurrence: None)
  Receive Date: 20150128
  Receipt Date: 20150128
  Transmission Date: 20150721
  Serious: Yes (Other)
  Sender: FDA-Public Use
  Company Number: KAD201501-000112

PATIENT
  Age: 53 Year
  Sex: Female

DRUGS (4)
  1. ABT-450/RITONAVIR/ABT-267 [Suspect]
     Active Substance: OMBITASVIR\PARITAPREVIR\RITONAVIR
     Indication: HEPATITIS C
     Route: 048
     Dates: start: 20141122, end: 20141205
  2. RIBAVIRIN (RIBAVIRIN) [Suspect]
     Active Substance: RIBAVIRIN
     Indication: HEPATITIS C
     Dosage: 600 MG (1200 MG DAILY)
     Route: 048
     Dates: start: 20141122, end: 20141205
  3. RABEPRAZOLE (RABEPRAZOLE) (RABEPRAZOLE) [Concomitant]
  4. ABT-333 [Suspect]
     Active Substance: DASABUVIR
     Indication: HEPATITIS C
     Dosage: 250 MG (500 MG DAILY)
     Route: 048
     Dates: start: 20141122, end: 20141205

REACTIONS (13)
  - Dysgeusia [None]
  - Parosmia [None]
  - Temperature intolerance [None]
  - Oedema peripheral [None]
  - Lethargy [None]
  - Liver disorder [None]
  - Weight increased [None]
  - Diarrhoea [None]
  - Hypoalbuminaemia [None]
  - Nausea [None]
  - Headache [None]
  - Hyperbilirubinaemia [None]
  - Jaundice [None]
